FAERS Safety Report 23019411 (Version 1)
Quarter: 2023Q4

REPORT INFORMATION
  Report Type: Report from Study
  Country: LB (occurrence: LB)
  Receive Date: 20231003
  Receipt Date: 20231003
  Transmission Date: 20240109
  Serious: Yes (Other)
  Sender: FDA-Public Use
  Company Number: LB-BAYER-2023A134947

PATIENT
  Sex: Female

DRUGS (1)
  1. EYLEA [Suspect]
     Active Substance: AFLIBERCEPT
     Indication: Diabetic retinal oedema
     Dosage: 40MG/ML, INTRAVITREAL INJECTION, SOLUTION FOR INJECTION, STRENGTH: 40 MG/ML
     Route: 031
     Dates: start: 20200313

REACTIONS (1)
  - Glaucoma [Not Recovered/Not Resolved]

NARRATIVE: CASE EVENT DATE: 20230101
